FAERS Safety Report 13681397 (Version 1)
Quarter: 2017Q2

REPORT INFORMATION
  Report Type: Spontaneous
  Country: US (occurrence: US)
  Receive Date: 20170623
  Receipt Date: 20170623
  Transmission Date: 20170830
  Serious: Yes (Other)
  Sender: FDA-Public Use
  Company Number: US-AUROBINDO-AUR-APL-2017-35636

PATIENT
  Sex: Female

DRUGS (1)
  1. BUPIVACAINE HYDROCHLORIDE 0.25% (2.5 MG/ML) [Suspect]
     Active Substance: BUPIVACAINE HYDROCHLORIDE
     Indication: ERYTHROMELALGIA
     Dosage: UNK
     Route: 008

REACTIONS (2)
  - Muscular weakness [Recovered/Resolved]
  - Sensory loss [Recovered/Resolved]
